FAERS Safety Report 25367703 (Version 1)
Quarter: 2025Q2

REPORT INFORMATION
  Report Type: Spontaneous
  Country: US (occurrence: US)
  Receive Date: 20250528
  Receipt Date: 20250528
  Transmission Date: 20250717
  Serious: No
  Sender: AUROBINDO
  Company Number: US-AUROBINDO-AUR-APL-2024-021911

PATIENT

DRUGS (1)
  1. VENLAFAXINE HYDROCHLORIDE [Suspect]
     Active Substance: VENLAFAXINE HYDROCHLORIDE
     Indication: Product used for unknown indication
     Route: 065

REACTIONS (7)
  - Depression [Unknown]
  - Depressed mood [Unknown]
  - Feeling of despair [Unknown]
  - Lethargy [Unknown]
  - Pain [Unknown]
  - Therapeutic response decreased [Unknown]
  - Product substitution issue [Unknown]
